FAERS Safety Report 9823748 (Version 3)
Quarter: 2015Q3

REPORT INFORMATION
  Report Type: Spontaneous
  Country: US (occurrence: US)
  Receive Date: 20140116
  Receipt Date: 20150807
  Transmission Date: 20151125
  Serious: No
  Sender: FDA-Public Use
  Company Number: US-GILEAD-2011-0037551

PATIENT
  Age: 74 Year
  Sex: Male

DRUGS (1)
  1. LETAIRIS [Suspect]
     Active Substance: AMBRISENTAN
     Indication: PRODUCT USED FOR UNKNOWN INDICATION
     Route: 048
     Dates: start: 20101116, end: 20110312

REACTIONS (8)
  - Dyspnoea [Unknown]
  - Pruritus [Unknown]
  - Flushing [Unknown]
  - Oedema [Unknown]
  - Urticaria [Unknown]
  - Nasal congestion [Unknown]
  - Headache [Unknown]
  - Acne [Unknown]

NARRATIVE: CASE EVENT DATE: 20110312
